FAERS Safety Report 6672900-3 (Version None)
Quarter: 2010Q2

REPORT INFORMATION
  Report Type: 
  Country: None (occurrence: None)
  Receive Date: 20100408
  Receipt Date: 20100330
  Transmission Date: 20101027
  Serious: Yes (Disabling, Other)
  Sender: FDA-Public Use
  Company Number: PHHY2010JP20543

PATIENT
  Sex: Male
  Weight: 60 kg

DRUGS (6)
  1. DIOVAN [Suspect]
     Dosage: 40 MG, QD
     Route: 048
     Dates: start: 20080412, end: 20090921
  2. TENORMIN [Concomitant]
     Indication: HYPERTENSION
     Dosage: 25 MG, UNK
     Route: 048
     Dates: start: 20030204, end: 20090921
  3. DOXAZOSIN MESYLATE [Concomitant]
     Indication: HYPERTENSION
     Dosage: 1 MG, UNK
     Route: 048
     Dates: start: 20010522, end: 20090109
  4. ADALAT CC [Concomitant]
     Indication: HYPERTENSION
     Dosage: 40 MG, UNK
     Route: 048
     Dates: start: 20030204, end: 20090921
  5. PANALDINE [Concomitant]
     Dosage: 200 MG, UNK
     Route: 048
     Dates: start: 19990924, end: 20090921
  6. BUFFERIN [Concomitant]
     Dosage: 81 MG, UNK
     Route: 048
     Dates: start: 19991111, end: 20090921

REACTIONS (2)
  - CEREBRAL INFARCTION [None]
  - OPTIC PATHWAY INJURY [None]
